FAERS Safety Report 7650729-7 (Version None)
Quarter: 2011Q3

REPORT INFORMATION
  Report Type: 
  Country: None (occurrence: None)
  Receive Date: 20110802
  Receipt Date: 20110721
  Transmission Date: 20111222
  Serious: Yes (Other)
  Sender: FDA-Public Use
  Company Number: US-BAYER-2010-008051

PATIENT
  Age: 22 Year
  Sex: Female
  Weight: 63.492 kg

DRUGS (18)
  1. ZOFRAN [Concomitant]
  2. AZITHROMYCIN [Concomitant]
  3. LORAZEPAM [Concomitant]
  4. OMEPRAZOLE [Concomitant]
  5. SERTRALINE HYDROCHLORIDE [Concomitant]
  6. YAZ [Suspect]
     Dosage: UNK
     Dates: start: 20060623, end: 20100518
  7. PROCHLORPERAZINE [Concomitant]
  8. YAZ [Suspect]
     Dosage: UNK
     Dates: start: 20050901, end: 20100518
  9. ADDERALL 10 [Concomitant]
  10. CELEXA [Concomitant]
  11. FLUTICASONE [Concomitant]
  12. YASMIN [Suspect]
     Dosage: UNK
     Dates: start: 20050901, end: 20100518
  13. KLONOPIN [Concomitant]
  14. ONDANSETRON [Concomitant]
  15. ZOLOFT [Concomitant]
  16. YASMIN [Suspect]
     Dosage: UNK
     Dates: start: 20060623, end: 20100518
  17. PROAIR HFA [Concomitant]
  18. CITALOPRAM HYDROBROMIDE [Concomitant]

REACTIONS (9)
  - PAIN [None]
  - ANXIETY [None]
  - ABDOMINAL PAIN [None]
  - CHOLECYSTITIS INFECTIVE [None]
  - DEPRESSION [None]
  - OVARIAN CYST [None]
  - NAUSEA [None]
  - GALLBLADDER PAIN [None]
  - VOMITING [None]
